FAERS Safety Report 4553696-8 (Version None)
Quarter: 2004Q4

REPORT INFORMATION
  Report Type: 
  Country: None (occurrence: None)
  Receive Date: 20041230
  Receipt Date: 20040723
  Transmission Date: 20050328
  Serious: Yes (Life-Threatening, Hospitalization, Other)
  Sender: FDA-Public Use
  Company Number: 04-07-1063

PATIENT
  Age: 33 Year
  Sex: Male
  Weight: 97.0698 kg

DRUGS (7)
  1. CLOZAPINE [Suspect]
     Indication: DELUSION
     Dosage: 500MG AM ORAL
     Route: 048
     Dates: start: 20021201
  2. LEVOTHYROXINE [Concomitant]
  3. HALOPERIDOL [Concomitant]
  4. LITHOBID [Concomitant]
  5. METFORMIN HCL [Concomitant]
  6. BENZTROPINE MESYLATE [Concomitant]
  7. NIACIN [Concomitant]

REACTIONS (1)
  - THROMBOCYTOPENIA [None]
